FAERS Safety Report 18576217 (Version 1)
Quarter: 2020Q4

REPORT INFORMATION
  Report Type: Spontaneous
  Country: US (occurrence: US)
  Receive Date: 20201203
  Receipt Date: 20201203
  Transmission Date: 20210114
  Serious: Yes (Other)
  Sender: FDA-Public Use
  Company Number: US-ASTRAZENECA-2020SF60468

PATIENT
  Sex: Male

DRUGS (3)
  1. HUMARA [Concomitant]
  2. BYDUREON [Suspect]
     Active Substance: EXENATIDE
     Route: 058
  3. JARDIAN [Concomitant]

REACTIONS (6)
  - Product dose omission issue [Unknown]
  - Weight decreased [Unknown]
  - Increased appetite [Unknown]
  - Arthritis [Unknown]
  - Blood glucose fluctuation [Unknown]
  - Injection site mass [Recovered/Resolved]
